FAERS Safety Report 26145497 (Version 1)
Quarter: 2025Q4

REPORT INFORMATION
  Report Type: Spontaneous
  Country: US (occurrence: None)
  Receive Date: 20251210
  Receipt Date: 20251210
  Transmission Date: 20260117
  Serious: Yes (Other)
  Sender: FDA-CTU
  Company Number: None

PATIENT

DRUGS (1)
  1. EMGALITY [Suspect]
     Active Substance: GALCANEZUMAB-GNLM
     Dosage: 120 MG/ML ONCE PER 30 DAYS  SUBCUTANEOUS
     Route: 058

REACTIONS (4)
  - Skin burning sensation [None]
  - Injection site pain [None]
  - Arthralgia [None]
  - Injection related reaction [None]
